FAERS Safety Report 18410044 (Version 1)
Quarter: 2020Q4

REPORT INFORMATION
  Report Type: Spontaneous
  Country: US (occurrence: US)
  Receive Date: 20201021
  Receipt Date: 20201021
  Transmission Date: 20210114
  Serious: Yes (Other)
  Sender: FDA-Public Use
  Company Number: None

PATIENT
  Age: 81 Year
  Sex: Female

DRUGS (1)
  1. SIMVASTATIN  TAB 40MG [Suspect]
     Active Substance: SIMVASTATIN
     Dates: start: 20200417, end: 20201021

REACTIONS (5)
  - Rhabdomyolysis [None]
  - Urine flow decreased [None]
  - Insomnia [None]
  - Dizziness [None]
  - Myalgia [None]

NARRATIVE: CASE EVENT DATE: 20200421
